FAERS Safety Report 9127880 (Version 2)
Quarter: 2014Q1

REPORT INFORMATION
  Report Type: Spontaneous
  Country: US (occurrence: US)
  Receive Date: 20130228
  Receipt Date: 20140228
  Transmission Date: 20141002
  Serious: Yes (Hospitalization, Disabling)
  Sender: FDA-Public Use
  Company Number: US-GLAXOSMITHKLINE-A1006484A

PATIENT
  Sex: Female

DRUGS (1)
  1. LAMICTAL [Suspect]
     Indication: AFFECTIVE DISORDER
     Route: 065
     Dates: start: 20110713, end: 20110729

REACTIONS (1)
  - Stevens-Johnson syndrome [Recovering/Resolving]
